FAERS Safety Report 6740411-2 (Version None)
Quarter: 2010Q2

REPORT INFORMATION
  Report Type: 
  Country: None (occurrence: None)
  Receive Date: 20100521
  Receipt Date: 20100204
  Transmission Date: 20101027
  Serious: Yes (Hospitalization)
  Sender: FDA-Public Use
  Company Number: WAES 1002USA01519

PATIENT
  Age: 84 Year
  Sex: Male

DRUGS (9)
  1. COZAAR [Suspect]
     Dosage: 1 TAB/DAILY
     Route: 048
     Dates: start: 20090529, end: 20090911
  2. TAB BLINDED THERAPY [Suspect]
     Indication: ACUTE CORONARY SYNDROME
     Route: 048
     Dates: start: 20081206
  3. DAPAROX [Concomitant]
  4. FRAXIPRAINE [Concomitant]
  5. CARVEDILOL [Concomitant]
  6. TAB BLINDED THERAPY [Suspect]
     Indication: ACUTE CORONARY SYNDROME
     Dosage: PO
     Route: 048
     Dates: start: 20061228
  7. TAB PLACEBO [Suspect]
     Indication: ACUTE CORONARY SYNDROME
     Dosage: PO
     Route: 048
     Dates: start: 20061228
  8. LASIX [Suspect]
     Dosage: 1 CAP/DAILY PO
     Route: 048
     Dates: start: 20061226, end: 20090911
  9. CAP LUVION(CANRENONE) [Suspect]
     Dosage: 1 CAP/DAILY PO
     Route: 048
     Dates: start: 20061228, end: 20090911

REACTIONS (1)
  - ORTHOSTATIC HYPOTENSION [None]
